FAERS Safety Report 24567134 (Version 2)
Quarter: 2024Q4

REPORT INFORMATION
  Report Type: Spontaneous
  Country: US (occurrence: US)
  Receive Date: 20241030
  Receipt Date: 20241106
  Transmission Date: 20250114
  Serious: No
  Sender: BIOMARIN
  Company Number: US-BIOMARINAP-US-2024-161478

PATIENT

DRUGS (2)
  1. ROCTAVIAN [Suspect]
     Active Substance: VALOCTOCOGENE ROXAPARVOVEC-RVOX
     Indication: Product used for unknown indication
     Route: 065
  2. PREDNISONE [Suspect]
     Active Substance: PREDNISONE
     Indication: Alanine aminotransferase increased
     Dosage: 60 MILLIGRAM, QD
     Route: 065
     Dates: start: 20241022

REACTIONS (2)
  - Feeling abnormal [Unknown]
  - Alanine aminotransferase increased [Unknown]
